FAERS Safety Report 12586818 (Version 2)
Quarter: 2016Q4

REPORT INFORMATION
  Report Type: Spontaneous
  Country: US (occurrence: US)
  Receive Date: 20160725
  Receipt Date: 20161109
  Transmission Date: 20170207
  Serious: No
  Sender: FDA-Public Use
  Company Number: US-PFIZER INC-2016350595

PATIENT
  Age: 56 Year
  Sex: Female

DRUGS (13)
  1. LYRICA [Suspect]
     Active Substance: PREGABALIN
     Dosage: 2 DF, 2X/DAY
  2. PROMETHAZINE [Concomitant]
     Active Substance: PROMETHAZINE\PROMETHAZINE HYDROCHLORIDE
     Indication: NAUSEA
     Dosage: 25 MG, AS NEEDED (BID)
     Route: 048
  3. SERTRALINE [Concomitant]
     Active Substance: SERTRALINE HYDROCHLORIDE
     Dosage: 100 MG, DAILY
  4. SERTRALINE [Concomitant]
     Active Substance: SERTRALINE HYDROCHLORIDE
     Dosage: 50 MG, DAILY (TAKE 1/2 TAB DAILY X 2 WEEKS)
     Route: 048
  5. SPIRIVA [Concomitant]
     Active Substance: TIOTROPIUM BROMIDE MONOHYDRATE
     Dosage: UNK, DAILY (TWO PUFFS)
  6. LISINOPRIL + HIDROCLOROTIAZIDA [Concomitant]
     Active Substance: HYDROCHLOROTHIAZIDE\LISINOPRIL
     Dosage: 2 DF, DAILY [HYDROCHLOROTHIAZIDE:12.5MG; LISINOPRIL: 20MG]
     Route: 048
  7. METFORMIN [Concomitant]
     Active Substance: METFORMIN HYDROCHLORIDE
     Dosage: 1000 MG, DAILY (WITH A MEAL FOR 2 WEEKS)
     Route: 048
  8. FARXIGA [Concomitant]
     Active Substance: DAPAGLIFLOZIN PROPANEDIOL
     Dosage: 10 MG, 1X/DAY
     Route: 048
  9. LYRICA [Suspect]
     Active Substance: PREGABALIN
     Dosage: 75 MG, 3X/DAY
     Route: 048
  10. ALPRAZOLAM. [Concomitant]
     Active Substance: ALPRAZOLAM
     Dosage: 0.5 MG, DAILY
     Route: 048
  11. HYDROCODONE-ACETAMINOPHEN [Concomitant]
     Active Substance: ACETAMINOPHEN\HYDROCODONE
     Indication: PAIN
     Dosage: 1 DF, AS NEEDED [HYDROCODONE 7.5MG, PARACETAMOL: 325 MG,AS NEEDED (ONE TABLET DAILY )]
     Route: 048
  12. JANUMET [Concomitant]
     Active Substance: METFORMIN HYDROCHLORIDE\SITAGLIPTIN PHOSPHATE
     Dosage: 1 DF, 2X/DAY [SITAGLIPTIN PHOSPHATE: 50 MG; METFORMIN HCL: 500 MG]
     Route: 048
  13. METFORMIN [Concomitant]
     Active Substance: METFORMIN HYDROCHLORIDE
     Dosage: 1000 MG, 2X/DAY (WITH MEALS)
     Route: 048

REACTIONS (4)
  - Burning sensation [Unknown]
  - Intentional product use issue [Unknown]
  - Pain in extremity [Unknown]
  - Back pain [Unknown]
